FAERS Safety Report 17722532 (Version 2)
Quarter: 2020Q2

REPORT INFORMATION
  Report Type: Spontaneous
  Country: CA (occurrence: CA)
  Receive Date: 20200429
  Receipt Date: 20200610
  Transmission Date: 20200714
  Serious: Yes (Life-Threatening, Hospitalization)
  Sender: FDA-Public Use
  Company Number: CA-ROCHE-2589585

PATIENT
  Age: 58 Year
  Sex: Male
  Weight: 74 kg

DRUGS (2)
  1. COTELLIC [Suspect]
     Active Substance: COBIMETINIB
     Indication: PRODUCT USED FOR UNKNOWN INDICATION
     Route: 065
  2. ZELBORAF [Suspect]
     Active Substance: VEMURAFENIB
     Indication: METASTATIC MALIGNANT MELANOMA
     Dosage: THERAPY DURATION 28 DAYS
     Route: 048

REACTIONS (18)
  - Malaise [Recovering/Resolving]
  - Pancreatitis [Recovering/Resolving]
  - Purpura [Recovering/Resolving]
  - Vomiting [Recovering/Resolving]
  - Pyrexia [Recovering/Resolving]
  - Hypovolaemia [Recovering/Resolving]
  - Pruritus [Recovering/Resolving]
  - Nausea [Recovering/Resolving]
  - Diarrhoea [Recovering/Resolving]
  - Acute kidney injury [Recovering/Resolving]
  - Hepatitis [Recovering/Resolving]
  - Pain [Recovering/Resolving]
  - Rash erythematous [Recovering/Resolving]
  - Petechiae [Recovering/Resolving]
  - Septic shock [Recovering/Resolving]
  - Thrombocytopenia [Recovering/Resolving]
  - Confusional state [Recovering/Resolving]
  - Fatigue [Recovering/Resolving]
